FAERS Safety Report 23990213 (Version 1)
Quarter: 2024Q2

REPORT INFORMATION
  Report Type: Other
  Country: US (occurrence: US)
  Receive Date: 20240619
  Receipt Date: 20240619
  Transmission Date: 20240716
  Serious: No
  Sender: FDA-Public Use
  Company Number: US-MLMSERVICE-20240513-PI059972-00195-1

PATIENT
  Age: 32 Year
  Sex: Female

DRUGS (5)
  1. ELIGARD [Suspect]
     Active Substance: LEUPROLIDE ACETATE
     Indication: HAIR-AN syndrome
  2. ELIGARD [Suspect]
     Active Substance: LEUPROLIDE ACETATE
     Indication: HAIR-AN syndrome
     Dosage: UNK
  3. METFORMIN [Concomitant]
     Active Substance: METFORMIN HYDROCHLORIDE
     Indication: HAIR-AN syndrome
     Dosage: 500 MILLIGRAM, Q 12 HR, TWICE DAILY
  4. LEVONORGESTREL [Concomitant]
     Active Substance: LEVONORGESTREL
     Indication: HAIR-AN syndrome
     Dosage: 20 MICROGRAM
     Route: 015
  5. NORETHINDRONE [Concomitant]
     Active Substance: NORETHINDRONE
     Indication: HAIR-AN syndrome

REACTIONS (3)
  - Off label use [Unknown]
  - Depression [Unknown]
  - Hot flush [Unknown]
